FAERS Safety Report 18860825 (Version 1)
Quarter: 2021Q1

REPORT INFORMATION
  Report Type: Spontaneous
  Country: DK (occurrence: DK)
  Receive Date: 20210208
  Receipt Date: 20210208
  Transmission Date: 20210420
  Serious: Yes (Congenital Anomaly)
  Sender: FDA-Public Use
  Company Number: DK-TEVA-2021-DK-1876678

PATIENT
  Age: 11 Month
  Sex: Female

DRUGS (1)
  1. ISOTRETINOIN ^TEVA^ [Suspect]
     Active Substance: ISOTRETINOIN
     Indication: ACNE
     Dosage: STRENGTH: 20 MG, UNIT DOSE: 40 MG
     Route: 064
     Dates: start: 20190130

REACTIONS (7)
  - Visual impairment [Not Recovered/Not Resolved]
  - Ventricular septal defect [Not Recovered/Not Resolved]
  - Teratogenicity [Not Recovered/Not Resolved]
  - Microtia [Not Recovered/Not Resolved]
  - Hypotonia [Not Recovered/Not Resolved]
  - Foetal exposure during pregnancy [Recovered/Resolved]
  - Dandy-Walker syndrome [Not Recovered/Not Resolved]
